FAERS Safety Report 5779040-6 (Version None)
Quarter: 2008Q2

REPORT INFORMATION
  Report Type: 
  Country: None (occurrence: None)
  Receive Date: 20080613
  Receipt Date: 20071119
  Transmission Date: 20081010
  Serious: Yes (Other)
  Sender: FDA-Public Use
  Company Number: PHEH2007US09788

PATIENT
  Age: 82 Year
  Sex: Female

DRUGS (1)
  1. EXELON [Suspect]
     Indication: PARKINSON'S DISEASE
     Dosage: 3 MG, BID, ORAL : 4.5 MG, ORAL
     Route: 048

REACTIONS (5)
  - APHASIA [None]
  - CONFUSIONAL STATE [None]
  - HYPOKINESIA [None]
  - IMPAIRED SELF-CARE [None]
  - MALAISE [None]
